FAERS Safety Report 11072744 (Version 4)
Quarter: 2015Q3

REPORT INFORMATION
  Report Type: Report from Study
  Country: US (occurrence: US)
  Receive Date: 20150428
  Receipt Date: 20150806
  Transmission Date: 20151125
  Serious: Yes (Hospitalization)
  Sender: FDA-Public Use
  Company Number: US-SA-2014SA148631

PATIENT
  Age: 75 Year
  Sex: Male
  Weight: 58.96 kg

DRUGS (30)
  1. AUBAGIO [Suspect]
     Active Substance: TERIFLUNOMIDE
     Indication: MULTIPLE SCLEROSIS
     Route: 048
     Dates: start: 20141006, end: 20150610
  2. GABAPENTIN. [Suspect]
     Active Substance: GABAPENTIN
     Route: 065
  3. DILANTIN [Concomitant]
     Active Substance: PHENYTOIN
     Dosage: STRENGHT: 100 MG?DOSAGE: 30 DAYS, 5
  4. TEGRETOL [Concomitant]
     Active Substance: CARBAMAZEPINE
     Dosage: STRENGTH: 200 MG?DOSAGE: 30 DAYS, 5
  5. TOPROL XL [Concomitant]
     Active Substance: METOPROLOL SUCCINATE
     Dosage: STRENGTH: 50 MG TB24?FREQNEYC: QAM 0 DAYS, 0
  6. ERGOCALCIFEROL. [Concomitant]
     Active Substance: ERGOCALCIFEROL
     Dosage: 50000 UNIT?0 DAYS, O
  7. AMPYRA [Concomitant]
     Active Substance: DALFAMPRIDINE
     Indication: MULTIPLE SCLEROSIS
     Dosage: 10 MG TB12?DOSAGE: 30 DAYS, 3
     Dates: start: 20140709, end: 20150610
  8. AMPYRA [Concomitant]
     Active Substance: DALFAMPRIDINE
     Dosage: STRENGTH: 10 MG TB12?DOSAGE: 30 DAYS, 0
  9. LISINOPRIL. [Concomitant]
     Active Substance: LISINOPRIL
     Dosage: STRENGTH: 40 MG
  10. PRINIVIL [Concomitant]
     Active Substance: LISINOPRIL
     Dosage: FREQUENCY: QAM 0 DAYS, 0?STRENGTH: 40 MG
  11. CLARITIN [Concomitant]
     Active Substance: LORATADINE
     Dosage: STRENGTH: 10 MG?0 DAYS, 0
  12. PROAIR HFA [Concomitant]
     Active Substance: ALBUTEROL SULFATE
  13. AUBAGIO [Suspect]
     Active Substance: TERIFLUNOMIDE
     Indication: MULTIPLE SCLEROSIS
     Route: 048
     Dates: start: 20140924
  14. DIAZEPAM. [Concomitant]
     Active Substance: DIAZEPAM
     Dosage: 0 DAYS, 0 REFILLS?STRENGTH: 5 MG
  15. SYNTHROID [Concomitant]
     Active Substance: LEVOTHYROXINE SODIUM
     Dosage: STRENGTH: 50 MCG
  16. SYMBICORT [Concomitant]
     Active Substance: BUDESONIDE\FORMOTEROL FUMARATE DIHYDRATE
     Dosage: STRENGTH: 160-45 MCG/ACT
  17. CLONIDINE HYDROCHLORIDE. [Concomitant]
     Active Substance: CLONIDINE HYDROCHLORIDE
     Dosage: 0.1 MG/24 HOUR
  18. SENOKOT [Concomitant]
     Active Substance: SENNOSIDES
     Dosage: STRENGTH: 8.6 MG?PM 0 DAYS, 0
  19. ALBUTEROL SULFATE. [Concomitant]
     Active Substance: ALBUTEROL SULFATE
     Dosage: HFA ?0 DAYS, 0
  20. LIMBITROL [Concomitant]
     Active Substance: AMITRIPTYLINE\CHLORDIAZEPOXIDE
     Dosage: 10/25 ?QHS 0 DAYS, 0
  21. VITAMIN B12 [Concomitant]
     Active Substance: CYANOCOBALAMIN
  22. PRAVASTATIN SODIUM. [Concomitant]
     Active Substance: PRAVASTATIN SODIUM
     Dosage: QHS 0 DAYS, 0?STRENGTH: 60 MG
  23. MIRALAX [Concomitant]
     Active Substance: POLYETHYLENE GLYCOL 3350
     Dosage: PACK?PM 0 DAYS, 0
  24. LEXAPRO [Concomitant]
     Active Substance: ESCITALOPRAM OXALATE
     Dosage: STRENGTH: 10 MG?0 DAYS, 0
  25. NEXIUM [Concomitant]
     Active Substance: ESOMEPRAZOLE MAGNESIUM
     Dosage: 0 DAYS, O?TRENGTH: 40MG PACK
  26. HYDROCODONE [Concomitant]
     Active Substance: HYDROCODONE
  27. NEURONTIN [Concomitant]
     Active Substance: GABAPENTIN
     Dosage: STRENGTH: 300 MG?DOSAGE: 30 DAYS, 5
  28. IRON [Concomitant]
     Active Substance: IRON
     Dosage: 65 FE?0DAYS, 0?STRENGTH: 325 MG
  29. AZELASTINE [Concomitant]
     Active Substance: AZELASTINE
     Dosage: HC 137?0 DAYS, 0
  30. AMBIEN [Concomitant]
     Active Substance: ZOLPIDEM TARTRATE
     Dosage: STRENGTH: 10 MG?QHS 0 DAYS, 0

REACTIONS (14)
  - Trigeminal neuralgia [Recovered/Resolved]
  - Decreased interest [Unknown]
  - Muscular weakness [Unknown]
  - Tremor [Unknown]
  - Diplopia [Unknown]
  - Cough [Unknown]
  - Paraesthesia [Unknown]
  - Muscular weakness [Unknown]
  - Fatigue [Unknown]
  - Condition aggravated [Unknown]
  - Feeling jittery [Unknown]
  - Blepharospasm [Unknown]
  - Visual impairment [Unknown]
  - Hypoaesthesia [Unknown]

NARRATIVE: CASE EVENT DATE: 201410
